FAERS Safety Report 4395243-X (Version None)
Quarter: 2004Q3

REPORT INFORMATION
  Report Type: 
  Country: None (occurrence: None)
  Receive Date: 20040712
  Receipt Date: 20040114
  Transmission Date: 20050211
  Serious: Yes (Hospitalization, Disabling, Other)
  Sender: FDA-Public Use
  Company Number: US-MERCK-0401USA01229

PATIENT
  Age: 43 Year
  Sex: Female
  Weight: 77 kg

DRUGS (8)
  1. EMEND [Suspect]
     Indication: VOMITING
     Route: 048
     Dates: start: 20040106, end: 20040106
  2. EMEND [Suspect]
     Route: 048
     Dates: start: 20040107, end: 20040107
  3. CYTOXAN [Concomitant]
     Route: 065
  4. DECADRON [Concomitant]
     Route: 065
  5. FENTANYL [Concomitant]
     Route: 061
  6. LORAZEPAM [Concomitant]
     Route: 065
  7. PALONOSETRON HYDROCHLORIDE [Concomitant]
     Route: 065
  8. PAXIL [Concomitant]
     Route: 065

REACTIONS (8)
  - ASTHENIA [None]
  - AUTOLOGOUS BONE MARROW TRANSPLANTATION THERAPY [None]
  - DRUG SCREEN POSITIVE [None]
  - HYPERREFLEXIA [None]
  - MYOCLONUS [None]
  - NAUSEA [None]
  - TREMOR [None]
  - VOMITING [None]
